FAERS Safety Report 22259990 (Version 1)
Quarter: 2023Q2

REPORT INFORMATION
  Report Type: Spontaneous
  Country: None (occurrence: DE)
  Receive Date: 20230427
  Receipt Date: 20230427
  Transmission Date: 20230721
  Serious: Yes (Hospitalization, Other)
  Sender: FDA-Public Use
  Company Number: DE-B.Braun Medical Inc.-2140846

PATIENT
  Age: 75 Year
  Sex: Male

DRUGS (7)
  1. METRONIDAZOLE [Suspect]
     Active Substance: METRONIDAZOLE
  2. CIPROFLOXACIN [Suspect]
     Active Substance: CIPROFLOXACIN
  3. CANDESARTAN [Concomitant]
     Active Substance: CANDESARTAN
  4. HYDROCHLOROTHIAZIDE [Concomitant]
     Active Substance: HYDROCHLOROTHIAZIDE
  5. FOSTER [Concomitant]
     Active Substance: BECLOMETHASONE\FORMOTEROL
  6. ALVESCO [Concomitant]
     Active Substance: CICLESONIDE
  7. AMLODIPINE [Concomitant]
     Active Substance: AMLODIPINE BESYLATE

REACTIONS (7)
  - Diarrhoea [Unknown]
  - Nausea [Unknown]
  - Abdominal pain lower [Unknown]
  - Flatulence [Unknown]
  - Dizziness [Unknown]
  - Dysgeusia [Unknown]
  - Haematochezia [Unknown]
